FAERS Safety Report 4491852-8 (Version None)
Quarter: 2004Q4

REPORT INFORMATION
  Report Type: 
  Country: None (occurrence: None)
  Receive Date: 20041028
  Receipt Date: 20041028
  Transmission Date: 20050328
  Serious: Yes (Hospitalization)
  Sender: FDA-Public Use
  Company Number: None

PATIENT
  Age: 42 Year
  Sex: Female
  Weight: 68.9467 kg

DRUGS (6)
  1. DOXORUBICIN HCL [Suspect]
     Indication: BREAST CANCER
     Dosage: 60 MG/M2 INTRAVENOUS
     Route: 042
     Dates: start: 20041010, end: 20041010
  2. CYCLOPHOSPHAMIDE [Suspect]
     Indication: BREAST CANCER
     Dosage: 600 MG/M2 INTRAVENOUS
     Route: 042
     Dates: start: 20041010, end: 20041010
  3. ANZEMET [Concomitant]
  4. DECADRON [Concomitant]
  5. ZOFRAN [Concomitant]
  6. REGLAN [Concomitant]

REACTIONS (2)
  - NAUSEA [None]
  - VOMITING [None]
